FAERS Safety Report 10181686 (Version 1)
Quarter: 2014Q2

REPORT INFORMATION
  Report Type: Spontaneous
  Country: US (occurrence: US)
  Receive Date: 20140519
  Receipt Date: 20140519
  Transmission Date: 20141212
  Serious: Yes (Hospitalization)
  Sender: FDA-Public Use
  Company Number: US-BRISTOL-MYERS SQUIBB COMPANY-20726055

PATIENT
  Sex: 0

DRUGS (1)
  1. YERVOY [Suspect]
     Indication: MALIGNANT MELANOMA
     Dosage: 1ST ROUND-NO OF DOSES:4?2ND ROUND-NO OF DOSES:3 ; DOSE-10MG

REACTIONS (1)
  - Cerebrovascular accident [Unknown]
